FAERS Safety Report 22372933 (Version 3)
Quarter: 2023Q2

REPORT INFORMATION
  Report Type: Spontaneous
  Country: US (occurrence: US)
  Receive Date: 20230526
  Receipt Date: 20230622
  Transmission Date: 20230721
  Serious: Yes (Hospitalization)
  Sender: FDA-Public Use
  Company Number: US-PFIZER INC-PV202300091998

PATIENT
  Age: 64 Year
  Sex: Female

DRUGS (1)
  1. OXBRYTA [Suspect]
     Active Substance: VOXELOTOR
     Dosage: 500 MG, 3X/DAY
     Route: 048
     Dates: start: 20200130

REACTIONS (3)
  - Mastectomy [Unknown]
  - Product distribution issue [Unknown]
  - Product dose omission issue [Unknown]
